FAERS Safety Report 10162411 (Version 1)
Quarter: 2014Q2

REPORT INFORMATION
  Report Type: Spontaneous
  Country: US (occurrence: US)
  Receive Date: 20140509
  Receipt Date: 20140509
  Transmission Date: 20141212
  Serious: No
  Sender: FDA-Public Use
  Company Number: US-GLAXOSMITHKLINE-A1040855A

PATIENT
  Age: 40 Year
  Sex: Female

DRUGS (2)
  1. BACTROBAN [Suspect]
     Indication: STAPHYLOCOCCAL INFECTION
     Dosage: 1APP TWICE PER DAY
     Route: 045
     Dates: start: 20130826, end: 20130906
  2. MULTIVITAMINS [Concomitant]

REACTIONS (1)
  - Dysgeusia [Recovering/Resolving]
